FAERS Safety Report 9657914 (Version 2)
Quarter: 2014Q1

REPORT INFORMATION
  Report Type: Report from Study
  Country: VE (occurrence: VE)
  Receive Date: 20131030
  Receipt Date: 20140202
  Transmission Date: 20141002
  Serious: Yes (Hospitalization)
  Sender: FDA-Public Use
  Company Number: VE-ROCHE-1296309

PATIENT
  Age: 8 Year
  Sex: Female

DRUGS (1)
  1. XOLAIR [Suspect]
     Indication: ASTHMA
     Route: 065
     Dates: start: 201304, end: 201304

REACTIONS (3)
  - Pneumonia [Recovering/Resolving]
  - Asthma [Recovering/Resolving]
  - Lung infection [Recovering/Resolving]
